FAERS Safety Report 9201308 (Version 2)
Quarter: 2013Q2

REPORT INFORMATION
  Report Type: Report from Study
  Country: AU (occurrence: AU)
  Receive Date: 20130401
  Receipt Date: 20130520
  Transmission Date: 20140414
  Serious: Yes (Hospitalization, Other)
  Sender: FDA-Public Use
  Company Number: PHHY2013AU030309

PATIENT
  Age: 59 Year
  Sex: Male

DRUGS (14)
  1. CLOZARIL [Suspect]
     Indication: SCHIZOPHRENIA
     Dosage: 600 MG
     Dates: end: 20130329
  2. CLOZARIL [Suspect]
     Dosage: UNK
     Route: 048
     Dates: start: 20130410
  3. DIAZEPAM [Suspect]
     Indication: AGITATION
     Dosage: 4 MG, BID
     Route: 048
  4. DIAZEPAM [Suspect]
     Dosage: 2 MG, DAILY
     Route: 048
     Dates: start: 20130327
  5. LITHIUM [Concomitant]
     Indication: AFFECTIVE DISORDER
     Dosage: 500 MG, NOCTE DAILY
  6. VALPROATE [Concomitant]
     Indication: EPILEPSY
     Dosage: 500 MG, BID
  7. PROPRANOLOL [Concomitant]
     Dosage: 40 MG, DAILY
  8. ROSUVASTATIN [Concomitant]
     Dosage: 5 MG, DAILY
  9. ALLOPURINOL [Concomitant]
     Dosage: 100 MG, DAILY
  10. PANADOL OSTEO [Concomitant]
     Dosage: UKN, BID
  11. OSTELIN [Concomitant]
     Dosage: 3000 IU, UNK
  12. AMLODIPINE [Concomitant]
     Dosage: 2.5 MG, DAILY
  13. FISH OIL [Concomitant]
     Dosage: 1000 UKN, DAILY
  14. VITAMIIN C [Concomitant]
     Dosage: 500 MG, DAILY

REACTIONS (7)
  - Intestinal obstruction [Recovered/Resolved]
  - Pulmonary oedema [Recovered/Resolved]
  - Cardiac failure acute [Recovered/Resolved]
  - Medication error [Unknown]
  - Pyrexia [Recovered/Resolved]
  - Antipsychotic drug level increased [Unknown]
  - Antipsychotic drug level decreased [Recovering/Resolving]
